FAERS Safety Report 6402284-7 (Version None)
Quarter: 2009Q4

REPORT INFORMATION
  Report Type: 
  Country: None (occurrence: None)
  Receive Date: 20091015
  Receipt Date: 20091007
  Transmission Date: 20100525
  Serious: Yes (Death, Hospitalization, Other)
  Sender: FDA-Public Use
  Company Number: PHEH2009US06546

PATIENT
  Sex: Female
  Weight: 65.1 kg

DRUGS (4)
  1. AFINITOR [Suspect]
     Indication: HODGKIN'S DISEASE
     Dosage: 10 MG, UNK
     Route: 048
     Dates: start: 20090616, end: 20090616
  2. AFINITOR [Suspect]
  3. AMLODIPINE [Concomitant]
     Indication: HYPERTENSION
     Dosage: 5 MG, QD
     Route: 048
  4. PERCOCET [Concomitant]
     Indication: PAIN
     Dosage: 5/325 Q6H PRN
     Route: 048

REACTIONS (35)
  - ANAPHYLACTIC REACTION [None]
  - ANGIOEDEMA [None]
  - BLOOD ALBUMIN DECREASED [None]
  - BLOOD CREATININE DECREASED [None]
  - BLOOD LACTATE DEHYDROGENASE INCREASED [None]
  - BLOOD MAGNESIUM DECREASED [None]
  - BLOOD POTASSIUM DECREASED [None]
  - BRONCHOSPASM [None]
  - DEATH [None]
  - DIARRHOEA [None]
  - DIZZINESS [None]
  - DYSARTHRIA [None]
  - DYSPNOEA [None]
  - DYSPNOEA EXERTIONAL [None]
  - GAMMA-GLUTAMYLTRANSFERASE INCREASED [None]
  - HAEMATOCRIT DECREASED [None]
  - HAEMOGLOBIN DECREASED [None]
  - HODGKIN'S DISEASE [None]
  - HYPERSENSITIVITY [None]
  - LARYNGOSPASM [None]
  - LOSS OF CONSCIOUSNESS [None]
  - LYMPHOCYTE COUNT DECREASED [None]
  - LYMPHOCYTE PERCENTAGE DECREASED [None]
  - MASS [None]
  - MEAN PLATELET VOLUME DECREASED [None]
  - NEUTROPHIL PERCENTAGE INCREASED [None]
  - PLATELET COUNT DECREASED [None]
  - PROTEIN TOTAL DECREASED [None]
  - RED CELL DISTRIBUTION WIDTH INCREASED [None]
  - RESPIRATORY DISTRESS [None]
  - SWELLING [None]
  - SWOLLEN TONGUE [None]
  - TACHYCARDIA [None]
  - TONGUE PARALYSIS [None]
  - WHEEZING [None]
